FAERS Safety Report 17293293 (Version 1)
Quarter: 2020Q1

REPORT INFORMATION
  Report Type: Spontaneous
  Country: GB (occurrence: GB)
  Receive Date: 20200121
  Receipt Date: 20200121
  Transmission Date: 20200409
  Serious: Yes (Other)
  Sender: FDA-Public Use
  Company Number: GB-TEVA-2020-GB-1169985

PATIENT
  Age: 50 Year
  Sex: Female
  Weight: 104.77 kg

DRUGS (2)
  1. TEVA UK ATORVASTATIN [Suspect]
     Active Substance: ATORVASTATIN
     Indication: BLOOD CHOLESTEROL INCREASED
     Dosage: 20 MG
     Route: 048
     Dates: start: 20191119
  2. AMIAS [Concomitant]
     Active Substance: CANDESARTAN CILEXETIL

REACTIONS (4)
  - Decreased appetite [Unknown]
  - Abdominal pain upper [Unknown]
  - Abdominal distension [Unknown]
  - Abdominal tenderness [Unknown]

NARRATIVE: CASE EVENT DATE: 20191126
